FAERS Safety Report 6677136-8 (Version None)
Quarter: 2010Q2

REPORT INFORMATION
  Report Type: 
  Country: None (occurrence: None)
  Receive Date: 20100412
  Receipt Date: 20100406
  Transmission Date: 20101027
  Serious: Yes (Hospitalization)
  Sender: FDA-Public Use
  Company Number: US-JNJFOC-20090908340

PATIENT
  Sex: Male
  Weight: 98.88 kg

DRUGS (8)
  1. SIMPONI [Suspect]
     Indication: ANKYLOSING SPONDYLITIS
     Route: 058
     Dates: start: 20090701, end: 20090801
  2. SIMPONI [Suspect]
     Route: 058
     Dates: start: 20090701, end: 20090801
  3. RIFAMPIN [Concomitant]
     Route: 048
  4. CEFAZOLIN [Concomitant]
     Route: 042
  5. PREVACID [Concomitant]
     Route: 048
  6. VERAPAMIL [Concomitant]
     Route: 048
  7. ZOLOFT [Concomitant]
     Route: 048
  8. KETOPROFEN [Concomitant]
     Route: 048

REACTIONS (6)
  - BRONCHITIS [None]
  - GASTROENTERITIS VIRAL [None]
  - HYPERTENSION [None]
  - IMMUNE SYSTEM DISORDER [None]
  - STAPHYLOCOCCAL ABSCESS [None]
  - STAPHYLOCOCCAL BACTERAEMIA [None]
